FAERS Safety Report 22166967 (Version 1)
Quarter: 2023Q2

REPORT INFORMATION
  Report Type: Spontaneous
  Country: US (occurrence: None)
  Receive Date: 20230402
  Receipt Date: 20230402
  Transmission Date: 20230721
  Serious: Yes (unspecified)
  Sender: FDA-Public Use
  Company Number: None

PATIENT
  Age: 53 Year
  Sex: Female
  Weight: 65.25 kg

DRUGS (3)
  1. ENHERTU [Suspect]
     Active Substance: FAM-TRASTUZUMAB DERUXTECAN-NXKI
     Indication: Breast cancer
     Dosage: OTHER FREQUENCY : 3WEEKS;?
     Route: 042
     Dates: start: 20221212
  2. ZOMETA [Concomitant]
     Active Substance: ZOLEDRONIC ACID
  3. Ensure chocolate milk [Concomitant]

REACTIONS (2)
  - Liver injury [None]
  - Alanine aminotransferase increased [None]

NARRATIVE: CASE EVENT DATE: 20221212
